FAERS Safety Report 20010240 (Version 1)
Quarter: 2021Q4

REPORT INFORMATION
  Report Type: Spontaneous
  Country: US (occurrence: US)
  Receive Date: 20211028
  Receipt Date: 20211028
  Transmission Date: 20220304
  Serious: Yes (Death, Hospitalization)
  Sender: FDA-Public Use
  Company Number: US-CHURCH + DWIGHT CO., INC.-2121122

PATIENT
  Sex: Female

DRUGS (1)
  1. ARM AND HAMMER BAKING SODA [Suspect]
     Active Substance: SODIUM BICARBONATE
     Route: 048
     Dates: start: 20201030

REACTIONS (2)
  - Gastric disorder [Fatal]
  - Death [Fatal]

NARRATIVE: CASE EVENT DATE: 20201031
